FAERS Safety Report 19186307 (Version 1)
Quarter: 2021Q2

REPORT INFORMATION
  Report Type: Spontaneous
  Country: TR (occurrence: TR)
  Receive Date: 20210427
  Receipt Date: 20210427
  Transmission Date: 20210717
  Serious: Yes (Other)
  Sender: FDA-Public Use
  Company Number: TR-PFIZER INC-2020305017

PATIENT
  Age: 28 Year
  Sex: Female

DRUGS (4)
  1. PROGESTAN [Concomitant]
     Active Substance: PROGESTERONE
     Dosage: 200 MG, 2X/DAY
     Dates: start: 202008
  2. OKSAPAR [Concomitant]
     Indication: COAGULOPATHY
     Dosage: 40 MG/0.4 ML 1X/DAY
     Route: 058
     Dates: start: 202008
  3. CHAMPIX [Suspect]
     Active Substance: VARENICLINE TARTRATE
     Indication: SMOKING CESSATION THERAPY
     Dosage: 2X/DAY (MORNING?EVENING)
     Dates: start: 20200722, end: 20200730
  4. CORASPIN [Concomitant]
     Active Substance: ASPIRIN
     Indication: ANTICOAGULANT THERAPY
     Dosage: 100 MG, 1X/DAY
     Dates: start: 202008

REACTIONS (2)
  - Delayed delivery [Unknown]
  - Maternal exposure during pregnancy [Unknown]

NARRATIVE: CASE EVENT DATE: 20200722
